FAERS Safety Report 24413417 (Version 7)
Quarter: 2025Q4

REPORT INFORMATION
  Report Type: Spontaneous
  Country: JP (occurrence: JP)
  Receive Date: 20241008
  Receipt Date: 20251209
  Transmission Date: 20260119
  Serious: Yes (Other)
  Sender: APELLIS PHARMACEUTICALS
  Company Number: JP-BIOVITRUM-2023-JP-017019

PATIENT

DRUGS (3)
  1. EMPAVELI [Suspect]
     Active Substance: PEGCETACOPLAN
     Indication: Paroxysmal nocturnal haemoglobinuria
     Dosage: TWICE PER WEEK
     Route: 058
     Dates: start: 20230927
  2. EMPAVELI [Suspect]
     Active Substance: PEGCETACOPLAN
     Dosage: ONCE PER 3 DAYS
     Dates: start: 20240923
  3. EMPAVELI [Suspect]
     Active Substance: PEGCETACOPLAN
     Dosage: THREE TIMES/WEEK
     Route: 058
     Dates: start: 20230928

REACTIONS (18)
  - Breakthrough haemolysis [Not Recovered/Not Resolved]
  - Haemoglobinuria [Not Recovered/Not Resolved]
  - Pneumonia [Not Recovered/Not Resolved]
  - Injection site bruising [Recovered/Resolved]
  - Blood lactate dehydrogenase increased [Recovered/Resolved]
  - Subcutaneous haematoma [Not Recovered/Not Resolved]
  - Therapeutic response unexpected [Unknown]
  - Injection site induration [Recovered/Resolved]
  - Injection site pain [Recovered/Resolved]
  - Fatigue [Not Recovered/Not Resolved]
  - Asthenia [Recovered/Resolved]
  - Somnolence [Unknown]
  - Body temperature increased [Unknown]
  - Blood bilirubin increased [Not Recovered/Not Resolved]
  - Reticulocyte count increased [Not Recovered/Not Resolved]
  - Peripheral swelling [Unknown]
  - Pain in extremity [Unknown]
  - Limb injury [Unknown]

NARRATIVE: CASE EVENT DATE: 20231026
